FAERS Safety Report 5590942-6 (Version None)
Quarter: 2007Q4

REPORT INFORMATION
  Report Type: 
  Country: None (occurrence: None)
  Receive Date: 20071214
  Receipt Date: 20070712
  Transmission Date: 20080405
  Serious: Yes (Other)
  Sender: FDA-Public Use
  Company Number: S07-USA-03007-01

PATIENT
  Age: 59 Year
  Sex: Female

DRUGS (22)
  1. NAMENDA [Suspect]
     Indication: AMNESIA
     Dosage: 15 MG QD PO
     Route: 048
     Dates: start: 20070709, end: 20070715
  2. NAMENDA [Suspect]
     Indication: PAIN
     Dosage: 15 MG QD PO
     Route: 048
     Dates: start: 20070709, end: 20070715
  3. NAMENDA [Suspect]
     Indication: PAIN
     Dosage: 10 MG BID PO
     Route: 048
     Dates: start: 20070716
  4. NAMENDA [Suspect]
     Indication: PAIN
     Dosage: 5 MG QD PO
     Route: 048
     Dates: start: 20070611, end: 20070701
  5. NAMENDA [Suspect]
     Indication: PAIN
     Dosage: 5 MG BID PO
     Route: 048
     Dates: start: 20070702, end: 20070708
  6. METFORMIN ER [Concomitant]
  7. WELLBUTRIN XL (BUPROPION HYDROCHLORIDE EXTENDED RELEASE) [Concomitant]
  8. AMBIEN CR [Concomitant]
  9. TOPAMAX [Concomitant]
  10. TIZANIDINE HCL [Concomitant]
  11. CELEBREX [Concomitant]
  12. KADIEN (MORPHINE SULFATE EXTENDED RELEASE) [Concomitant]
  13. VYTORIN [Concomitant]
  14. CYMBALTA [Concomitant]
  15. WELLBUTRIN [Concomitant]
  16. MORPHINE SULFATE [Concomitant]
  17. MIRALAX [Concomitant]
  18. SENNA-S [Concomitant]
  19. FISH OIL [Concomitant]
  20. MULTI-VITAMIN [Concomitant]
  21. HIGH POTENCY B COMPLEX WITH FOLIC ACID AND VITAMIN C [Concomitant]
  22. BIOTIN [Concomitant]

REACTIONS (1)
  - BLOOD GLUCOSE DECREASED [None]
